FAERS Safety Report 16230760 (Version 35)
Quarter: 2024Q2

REPORT INFORMATION
  Report Type: Report from Study
  Country: CA (occurrence: CA)
  Receive Date: 20190423
  Receipt Date: 20240515
  Transmission Date: 20240716
  Serious: Yes (Hospitalization, Other)
  Sender: FDA-Public Use
  Company Number: PHHY2016CA170205

PATIENT
  Age: 58 Year
  Sex: Female

DRUGS (21)
  1. SANDOSTATIN LAR DEPOT [Suspect]
     Active Substance: OCTREOTIDE ACETATE
     Indication: Carcinoid tumour
     Dosage: 30 MG, QMO (FROM 22 FEB 2017, EVERY 4 WEEKS)
     Route: 030
  2. SANDOSTATIN LAR DEPOT [Suspect]
     Active Substance: OCTREOTIDE ACETATE
     Dosage: 30 MG, QMO (EVERY 4 WEEKS)
     Route: 030
  3. SANDOSTATIN LAR DEPOT [Suspect]
     Active Substance: OCTREOTIDE ACETATE
     Dosage: 30 MG, QMO (EVERY 4 WEEKS)
     Route: 030
     Dates: start: 20170222
  4. SANDOSTATIN LAR DEPOT [Suspect]
     Active Substance: OCTREOTIDE ACETATE
     Dosage: 30 MG, QMO (EVERY 4 WEEKS)
     Route: 030
     Dates: start: 20170222
  5. SANDOSTATIN LAR DEPOT [Suspect]
     Active Substance: OCTREOTIDE ACETATE
     Dosage: 30 MG, QMO (EVERY 4 WEEKS
     Route: 030
     Dates: start: 20170222
  6. SANDOSTATIN LAR DEPOT [Suspect]
     Active Substance: OCTREOTIDE ACETATE
     Dosage: 30 MG, QMO (EVERY 4 WEEKS)
     Route: 030
     Dates: start: 20170222
  7. SANDOSTATIN LAR DEPOT [Suspect]
     Active Substance: OCTREOTIDE ACETATE
     Dosage: UNK
     Route: 065
     Dates: start: 20240124
  8. SANDOSTATIN [Suspect]
     Active Substance: OCTREOTIDE ACETATE
     Indication: Carcinoid tumour
     Dosage: UNK UNK, TID (STRENGTH: 100 MCG FOR ONE WEEK)
     Route: 058
     Dates: start: 20161205, end: 201612
  9. SANDOSTATIN [Suspect]
     Active Substance: OCTREOTIDE ACETATE
     Dosage: UNK UNK, TID (STRENGTH: 100 MCG FOR ONE WEEK) (START DATE:05 UNK 2016)
     Route: 058
     Dates: end: 2016
  10. SANDOSTATIN [Suspect]
     Active Substance: OCTREOTIDE ACETATE
     Dosage: UNK UNK, BID (STRENGTH: 75 UG)
     Route: 058
     Dates: start: 20170124, end: 20170207
  11. SANDOSTATIN [Suspect]
     Active Substance: OCTREOTIDE ACETATE
     Dosage: 75 UG, TID
     Route: 058
     Dates: start: 2017, end: 2017
  12. SANDOSTATIN [Suspect]
     Active Substance: OCTREOTIDE ACETATE
     Dosage: UNK UNK, BID (STRENGTH: 100 UG)
     Route: 058
     Dates: start: 2017, end: 2017
  13. SANDOSTATIN [Suspect]
     Active Substance: OCTREOTIDE ACETATE
     Dosage: UNK UNK, BID (STRENGTH: 100 MCG) (STOP DATE:07 UNK 2017)
     Route: 058
     Dates: start: 2017
  14. SANDOSTATIN [Suspect]
     Active Substance: OCTREOTIDE ACETATE
     Dosage: UNK UNK, BID (STRENGTH: 75 UG) (START DATE:24 UNK 2017)
     Route: 058
     Dates: end: 2017
  15. SIMVASTATIN [Suspect]
     Active Substance: SIMVASTATIN
     Indication: Arthralgia
     Dosage: 5 MG, Q12H
     Route: 065
  16. SIMVASTATIN [Suspect]
     Active Substance: SIMVASTATIN
     Indication: Renal pain
  17. BISOPROLOL [Suspect]
     Active Substance: BISOPROLOL\BISOPROLOL FUMARATE
     Indication: Product used for unknown indication
     Dosage: UNK, BID
     Route: 048
  18. PANTOPRAZOLE SODIUM [Concomitant]
     Active Substance: PANTOPRAZOLE SODIUM
     Indication: Product used for unknown indication
     Dosage: 1 DOSAGE FORM, BID
     Route: 048
  19. CORTISONE [Concomitant]
     Active Substance: CORTISONE
     Indication: Product used for unknown indication
     Dosage: UNK
     Route: 065
  20. ROSUVASTATIN [Concomitant]
     Active Substance: ROSUVASTATIN
     Indication: Product used for unknown indication
     Dosage: 1 DOSAGE FORM, QD
     Route: 048
  21. ASPIRIN [Concomitant]
     Active Substance: ASPIRIN
     Indication: Product used for unknown indication
     Dosage: 1 DOSAGE FORM, QD
     Route: 048

REACTIONS (48)
  - Pain [Unknown]
  - Kidney infection [Unknown]
  - Pyrexia [Recovered/Resolved]
  - Pyrexia [Unknown]
  - Nephrolithiasis [Not Recovered/Not Resolved]
  - Renal pain [Unknown]
  - Thrombosis [Unknown]
  - Pneumonia [Unknown]
  - Blood pressure increased [Unknown]
  - Cough [Unknown]
  - Myalgia [Unknown]
  - Productive cough [Unknown]
  - Pulmonary pain [Unknown]
  - Diverticulitis [Unknown]
  - Abdominal pain [Unknown]
  - Back pain [Unknown]
  - Burning sensation [Unknown]
  - Weight decreased [Unknown]
  - Chills [Recovered/Resolved]
  - Feeling cold [Recovered/Resolved]
  - Hot flush [Unknown]
  - Feeling hot [Unknown]
  - Chills [Unknown]
  - Arthralgia [Recovered/Resolved]
  - Drug intolerance [Unknown]
  - Catheter site infection [Unknown]
  - Urine analysis abnormal [Unknown]
  - Urine odour abnormal [Unknown]
  - Urine viscosity increased [Unknown]
  - Eye inflammation [Unknown]
  - Visual impairment [Unknown]
  - Eye pain [Unknown]
  - Contusion [Unknown]
  - Fall [Unknown]
  - Procedural pain [Unknown]
  - Device issue [Unknown]
  - Dizziness [Recovered/Resolved]
  - Nausea [Unknown]
  - Headache [Recovered/Resolved]
  - Diarrhoea [Recovered/Resolved]
  - Asthenia [Unknown]
  - Dizziness [Unknown]
  - Headache [Unknown]
  - Muscle spasms [Unknown]
  - Needle issue [Unknown]
  - Injection site haemorrhage [Unknown]
  - Injection site pain [Recovered/Resolved]
  - Blood urine present [Unknown]

NARRATIVE: CASE EVENT DATE: 20161205
